FAERS Safety Report 18293938 (Version 1)
Quarter: 2020Q3

REPORT INFORMATION
  Report Type: Other
  Country: US (occurrence: US)
  Receive Date: 20200921
  Receipt Date: 20200921
  Transmission Date: 20201103
  Serious: No
  Sender: FDA-Public Use
  Company Number: US-ACORDA-ACO_165394_2020

PATIENT
  Sex: Male

DRUGS (5)
  1. CARBIDOPA/LEVODOPA [Concomitant]
     Active Substance: CARBIDOPA\LEVODOPA
     Indication: PRODUCT USED FOR UNKNOWN INDICATION
     Dosage: 25 MG/ 100 MG, 1 PILL EVERY 3 HOURS
     Route: 065
  2. INBRIJA [Suspect]
     Active Substance: LEVODOPA
     Indication: ON AND OFF PHENOMENON
     Dosage: 84 MILLIGRAM, PRN, NOT TO EXCEED 5 DOSES A DAY
     Dates: start: 202007
  3. NOURIANZ [Concomitant]
     Active Substance: ISTRADEFYLLINE
     Indication: PRODUCT USED FOR UNKNOWN INDICATION
     Dosage: 20 MILLIGRAM, QD
     Route: 065
  4. INBRIJA [Suspect]
     Active Substance: LEVODOPA
     Indication: PARKINSON^S DISEASE
     Dosage: ONE CAPSULE PER DOSE
     Route: 065
     Dates: start: 20200619
  5. RYTARY [Concomitant]
     Active Substance: CARBIDOPA\LEVODOPA
     Indication: PRODUCT USED FOR UNKNOWN INDICATION
     Dosage: 61.25/245 MG 1 PILL Q3 HOURS
     Route: 065

REACTIONS (12)
  - Drug ineffective [Unknown]
  - Therapeutic product effect variable [Unknown]
  - Pain in extremity [Not Recovered/Not Resolved]
  - Accidental underdose [Unknown]
  - Dysphagia [Not Recovered/Not Resolved]
  - Condition aggravated [Not Recovered/Not Resolved]
  - Cough [Unknown]
  - Device use issue [Unknown]
  - Hypokinesia [Not Recovered/Not Resolved]
  - Anxiety [Unknown]
  - Parkinson^s disease [Unknown]
  - Therapy cessation [Unknown]
